FAERS Safety Report 6216062-5 (Version None)
Quarter: 2009Q2

REPORT INFORMATION
  Report Type: 
  Country: None (occurrence: None)
  Receive Date: 20090605
  Receipt Date: 20090529
  Transmission Date: 20091009
  Serious: Yes (Other)
  Sender: FDA-Public Use
  Company Number: US-JNJFOC-20090600543

PATIENT
  Sex: Female
  Weight: 61.24 kg

DRUGS (10)
  1. RISPERDAL [Suspect]
     Indication: MIGRAINE
     Dosage: AT BED TIME
     Route: 048
  2. RISPERIDONE [Suspect]
     Indication: MIGRAINE
     Dosage: AT BED TIME
     Route: 048
  3. HYDROXYZINE [Suspect]
     Route: 065
  4. HYDROXYZINE [Suspect]
     Indication: DRUG USE FOR UNKNOWN INDICATION
     Route: 065
  5. TOPAMAX [Suspect]
     Indication: MIGRAINE
     Route: 048
  6. COGENTIN [Suspect]
     Indication: MIGRAINE
     Route: 048
  7. DEPAKOTE [Concomitant]
     Route: 048
  8. TRAZODONE HCL [Concomitant]
     Indication: DEPRESSION
     Route: 048
  9. EFFEXOR [Concomitant]
     Indication: DEPRESSION
     Route: 048
  10. ZOFRAN [Concomitant]
     Indication: NAUSEA
     Route: 030

REACTIONS (10)
  - ANXIETY [None]
  - CHEST PAIN [None]
  - DROOLING [None]
  - HEART RATE INCREASED [None]
  - HYPERTENSION [None]
  - OFF LABEL USE [None]
  - PSYCHOMOTOR HYPERACTIVITY [None]
  - RESTLESSNESS [None]
  - SELF-MEDICATION [None]
  - URINARY INCONTINENCE [None]
